FAERS Safety Report 6304656-8 (Version None)
Quarter: 2009Q3

REPORT INFORMATION
  Report Type: 
  Country: None (occurrence: None)
  Receive Date: 20090806
  Receipt Date: 20090730
  Transmission Date: 20100115
  Serious: Yes (Hospitalization)
  Sender: FDA-Public Use
  Company Number: 8049509

PATIENT
  Age: 15 Year
  Sex: Female
  Weight: 66 kg

DRUGS (3)
  1. KEPPRA [Suspect]
     Dosage: 500 MG 2/D PO
     Route: 048
     Dates: start: 20090702, end: 20090722
  2. VANCOMYCIN [Suspect]
  3. MEROPENEM [Concomitant]

REACTIONS (3)
  - DRUG RASH WITH EOSINOPHILIA AND SYSTEMIC SYMPTOMS [None]
  - HAEMATOCRIT DECREASED [None]
  - HYPOVOLAEMIA [None]
